FAERS Safety Report 5443507-0 (Version None)
Quarter: 2007Q3

REPORT INFORMATION
  Report Type: 
  Country: None (occurrence: None)
  Receive Date: 20070831
  Receipt Date: 20070815
  Transmission Date: 20080115
  Serious: Yes (Hospitalization)
  Sender: FDA-Public Use
  Company Number: 2007BI017275

PATIENT
  Age: 39 Year
  Sex: Female

DRUGS (1)
  1. NATALIZUMAB [Suspect]
     Indication: MULTIPLE SCLEROSIS
     Dosage: 300 MG;QM;IV
     Route: 042
     Dates: start: 20061019, end: 20070611

REACTIONS (8)
  - CONDITION AGGRAVATED [None]
  - ELECTROENCEPHALOGRAM ABNORMAL [None]
  - ENCEPHALITIS VIRAL [None]
  - HYPONATRAEMIA [None]
  - MENINGITIS [None]
  - MULTIPLE SCLEROSIS [None]
  - PROGRESSIVE MULTIFOCAL LEUKOENCEPHALOPATHY [None]
  - URINARY TRACT INFECTION [None]
